FAERS Safety Report 5491916-6 (Version None)
Quarter: 2007Q4

REPORT INFORMATION
  Report Type: 
  Country: None (occurrence: None)
  Receive Date: 20071022
  Receipt Date: 20071019
  Transmission Date: 20080405
  Serious: Yes (Other)
  Sender: FDA-Public Use
  Company Number: A0688633A

PATIENT
  Age: 65 Year
  Sex: Male

DRUGS (1)
  1. COMMIT [Suspect]
     Dosage: 2MG FOUR TIMES PER DAY
     Route: 002
     Dates: start: 20070101

REACTIONS (2)
  - GLUCOSE TOLERANCE IMPAIRED [None]
  - INTENTIONAL DRUG MISUSE [None]
